FAERS Safety Report 8269299-8 (Version None)
Quarter: 2012Q2

REPORT INFORMATION
  Report Type: 
  Country: None (occurrence: None)
  Receive Date: 20120409
  Receipt Date: 20120327
  Transmission Date: 20120825
  Serious: Yes (Other)
  Sender: FDA-Public Use
  Company Number: FR-ROCHE-1052811

PATIENT
  Sex: Male
  Weight: 67.056 kg

DRUGS (7)
  1. OLMESARTAN MEDOXOMIL [Concomitant]
     Indication: HYPERTENSION
  2. FLUTICASONE PROPIONATE/SALMETEROL [Concomitant]
     Indication: ASTHMA
  3. XOLAIR [Suspect]
     Indication: ASTHMA
     Dates: start: 20110701, end: 20120320
  4. SYMBICORT [Concomitant]
  5. SINGULAIR [Concomitant]
     Indication: ASTHMA
  6. THEOPHYLLINE [Concomitant]
  7. FLUVASTATIN [Concomitant]
     Indication: HYPERCHOLESTEROLAEMIA

REACTIONS (13)
  - TACHYCARDIA [None]
  - EJECTION FRACTION DECREASED [None]
  - LEFT VENTRICULAR END-DIASTOLIC PRESSURE INCREASED [None]
  - ASTHMA [None]
  - DYSPNOEA [None]
  - ARTERIAL OCCLUSIVE DISEASE [None]
  - AKINESIA [None]
  - CARDIOMYOPATHY [None]
  - CORONARY ARTERY STENOSIS [None]
  - MYOCARDIAL INFARCTION [None]
  - MYOCARDIAL ISCHAEMIA [None]
  - ELECTROCARDIOGRAM ABNORMAL [None]
  - MITRAL VALVE INCOMPETENCE [None]
